FAERS Safety Report 7037853-7 (Version None)
Quarter: 2010Q4

REPORT INFORMATION
  Report Type: 
  Country: None (occurrence: None)
  Receive Date: 20101011
  Receipt Date: 20101005
  Transmission Date: 20110411
  Serious: Yes (Death)
  Sender: FDA-Public Use
  Company Number: US-ELI_LILLY_AND_COMPANY-US201009001800

PATIENT
  Sex: Male

DRUGS (6)
  1. GEMZAR [Suspect]
     Indication: LUNG CANCER METASTATIC
     Dosage: 1920 MG, UNK
     Dates: start: 20100624, end: 20100729
  2. ALIMTA [Suspect]
     Indication: LUNG CANCER METASTATIC
  3. CARBOPLATIN [Concomitant]
     Indication: LUNG NEOPLASM MALIGNANT
  4. TAXOL [Concomitant]
     Indication: LUNG NEOPLASM MALIGNANT
  5. AVASTIN [Concomitant]
     Indication: LUNG NEOPLASM MALIGNANT
  6. ALOXI [Concomitant]

REACTIONS (1)
  - MALIGNANT NEOPLASM PROGRESSION [None]
